FAERS Safety Report 14084121 (Version 2)
Quarter: 2018Q1

REPORT INFORMATION
  Report Type: Spontaneous
  Country: IT (occurrence: IT)
  Receive Date: 20171013
  Receipt Date: 20180206
  Transmission Date: 20180508
  Serious: Yes (Hospitalization)
  Sender: FDA-Public Use
  Company Number: IT-ROCHE-2006221

PATIENT
  Age: 81 Year
  Sex: Male

DRUGS (3)
  1. DIAMICRON MR [Concomitant]
     Active Substance: GLICLAZIDE
     Dosage: 60 X 30MG MODIFIED-RELEASE TABLETS IN BLISTER PACK
     Route: 065
  2. RIVOTRIL [Suspect]
     Active Substance: CLONAZEPAM
     Indication: EPILEPSY
     Dosage: 2.5MG/ML 10 ML BOTTLE PERIOD: 1 DAY?AS REQUIRED
     Route: 048
  3. OMNIC [Concomitant]
     Active Substance: TAMSULOSIN HYDROCHLORIDE
     Dosage: 0.4 MG HARD MODIFIED-RELEASE CAPSULES 20 CAPSULES
     Route: 065

REACTIONS (3)
  - Hypotension [Unknown]
  - Hypoxia [Unknown]
  - Sopor [Unknown]

NARRATIVE: CASE EVENT DATE: 20171002
